FAERS Safety Report 5414603-9 (Version None)
Quarter: 2007Q3

REPORT INFORMATION
  Report Type: 
  Country: None (occurrence: None)
  Receive Date: 20070731
  Receipt Date: 20070611
  Transmission Date: 20080115
  Serious: No
  Sender: FDA-Public Use
  Company Number: 2006PV026408

PATIENT
  Age: 69 Year
  Sex: Female

DRUGS (5)
  1. EXENATIDE (EXENATIDE) PEN,DISPOSABLE [Suspect]
     Indication: TYPE 2 DIABETES MELLITUS
     Dosage: 10 UG, 2/D, SUBCUTANEOUS, 5 UG, 2/D, SUBCUTANEOUS, SUBCUTANEOUS
     Route: 058
     Dates: start: 20060801, end: 20060901
  2. EXENATIDE (EXENATIDE) PEN,DISPOSABLE [Suspect]
     Indication: TYPE 2 DIABETES MELLITUS
     Dosage: 10 UG, 2/D, SUBCUTANEOUS, 5 UG, 2/D, SUBCUTANEOUS, SUBCUTANEOUS
     Route: 058
     Dates: start: 20060901, end: 20061204
  3. GLUCOTROL XL [Concomitant]
  4. GLUCOPHAGE [Concomitant]
  5. INSULIN [Concomitant]

REACTIONS (4)
  - ANOREXIA [None]
  - DECREASED APPETITE [None]
  - OEDEMA PERIPHERAL [None]
  - WEIGHT DECREASED [None]
